FAERS Safety Report 8459617 (Version 2)
Quarter: 2015Q1

REPORT INFORMATION
  Report Type: Spontaneous
  Country: US (occurrence: US)
  Receive Date: 20120314
  Receipt Date: 20150201
  Transmission Date: 20150721
  Serious: No
  Sender: FDA-Public Use
  Company Number: US-ASTRAZENECA-2011SE71311

PATIENT
  Age: 55 Year
  Sex: Female

DRUGS (2)
  1. AVAPRO HCTZ [Concomitant]
  2. TOPROL XL [Suspect]
     Active Substance: METOPROLOL SUCCINATE
     Route: 048

REACTIONS (4)
  - Peripheral swelling [Unknown]
  - Drug dose omission [Unknown]
  - Malaise [Unknown]
  - Influenza [Unknown]
